FAERS Safety Report 7971541-5 (Version None)
Quarter: 2011Q4

REPORT INFORMATION
  Report Type: 
  Country: None (occurrence: None)
  Receive Date: 20111209
  Receipt Date: 20111209
  Transmission Date: 20120403
  Serious: Yes (Hospitalization)
  Sender: FDA-Public Use
  Company Number: None

PATIENT
  Age: 63 Year
  Sex: Male
  Weight: 67.6 kg

DRUGS (1)
  1. OXCARBAZEPINE [Suspect]
     Indication: DIABETIC NEUROPATHY
     Dosage: MG BID PO
     Route: 048
     Dates: start: 20110829

REACTIONS (1)
  - HYPONATRAEMIA [None]
